FAERS Safety Report 14840082 (Version 2)
Quarter: 2018Q2

REPORT INFORMATION
  Report Type: Spontaneous
  Country: IT (occurrence: IT)
  Receive Date: 20180503
  Receipt Date: 20180604
  Transmission Date: 20180711
  Serious: Yes (Other)
  Sender: FDA-Public Use
  Company Number: IT-B.I. PHARMACEUTICALS,INC./RIDGEFIELD-2018-12-001573

PATIENT
  Age: 78 Year
  Sex: Female

DRUGS (1)
  1. PRITOR [Suspect]
     Active Substance: TELMISARTAN
     Indication: HYPERTENSIVE HEART DISEASE
     Route: 048

REACTIONS (2)
  - Hypotension [Recovering/Resolving]
  - Confusional state [Recovering/Resolving]

NARRATIVE: CASE EVENT DATE: 20130402
